FAERS Safety Report 7273224-6 (Version None)
Quarter: 2011Q1

REPORT INFORMATION
  Report Type: 
  Country: None (occurrence: None)
  Receive Date: 20110203
  Receipt Date: 20110120
  Transmission Date: 20110831
  Serious: Yes (Other)
  Sender: FDA-Public Use
  Company Number: TR-ELI_LILLY_AND_COMPANY-TR201101005386

PATIENT
  Age: 30 Year
  Sex: Female
  Weight: 64 kg

DRUGS (2)
  1. CYMBALTA [Suspect]
     Dosage: 30 MG, DAILY (1/D)
     Dates: start: 20101001
  2. CYMBALTA [Suspect]
     Dosage: UNK, UNKNOWN
     Dates: start: 20110120

REACTIONS (2)
  - DRUG WITHDRAWAL SYNDROME [None]
  - SYNCOPE [None]
